FAERS Safety Report 25010122 (Version 3)
Quarter: 2025Q2

REPORT INFORMATION
  Report Type: Spontaneous
  Country: JP (occurrence: JP)
  Receive Date: 20250225
  Receipt Date: 20250421
  Transmission Date: 20250716
  Serious: Yes (Hospitalization)
  Sender: CARA THERAPEUTICS
  Company Number: JP-CARA THERAPEUTICS, INC.-2025-00062-JP

PATIENT

DRUGS (13)
  1. KORSUVA [Suspect]
     Active Substance: DIFELIKEFALIN ACETATE
     Indication: Pruritus
     Route: 042
     Dates: start: 20241016
  2. ELOBIXIBAT [Concomitant]
     Active Substance: ELOBIXIBAT
  3. VONOPRAZAN FUMARATE [Concomitant]
     Active Substance: VONOPRAZAN FUMARATE
  4. ASPIRIN [Concomitant]
     Active Substance: ASPIRIN
  5. FEBUXOSTAT [Concomitant]
     Active Substance: FEBUXOSTAT
  6. LINZESS [Concomitant]
     Active Substance: LINACLOTIDE
  7. CALCIUM CARBONATE [Concomitant]
     Active Substance: CALCIUM CARBONATE
  8. NICORANDIL [Concomitant]
     Active Substance: NICORANDIL
  9. ATORVASTATIN [Concomitant]
     Active Substance: ATORVASTATIN
  10. MAGNESIUM OXIDE [Concomitant]
     Active Substance: MAGNESIUM OXIDE
  11. PURSENNID EX-LAX [SENNOSIDE A+B] [Concomitant]
  12. SODIUM PICOSULFATE [Concomitant]
     Active Substance: SODIUM PICOSULFATE
  13. OLMESARTAN MEDOXOMIL [Concomitant]
     Active Substance: OLMESARTAN MEDOXOMIL

REACTIONS (1)
  - Cerebral infarction [Recovered/Resolved]
